FAERS Safety Report 8922676 (Version 1)
Quarter: 2012Q4

REPORT INFORMATION
  Report Type: 
  Country: SE (occurrence: SE)
  Receive Date: 20121123
  Receipt Date: 20121123
  Transmission Date: 20130627
  Serious: Yes (Hospitalization)
  Sender: FDA-Public Use
  Company Number: SE-PFIZER INC-2012289993

PATIENT
  Age: 57 Year
  Sex: Female
  Weight: 62 kg

DRUGS (34)
  1. GENOTROPIN [Suspect]
     Indication: GROWTH HORMONE DEFICIENCY
     Dosage: 0.1 mg, 1x/day, 7 injections/week
     Route: 058
     Dates: start: 20010511
  2. DYGRATYL [Concomitant]
     Indication: TSH DECREASED
     Dosage: UNK
     Dates: start: 19940501
  3. DYGRATYL [Concomitant]
     Indication: PRIMARY HYPOTHYROIDISM
  4. CALCEVITA [Concomitant]
     Indication: HYPOCALCAEMIA
     Dosage: UNK
     Dates: start: 19941001
  5. CALCEVITA [Concomitant]
     Indication: HYPOMAGNESAEMIA
  6. CALCIUM-SANDOZ [Concomitant]
     Indication: OSTEOPOROSIS
     Dosage: UNK
     Dates: start: 19941015
  7. IDOCYKLIN [Concomitant]
     Indication: ADENOIDAL HYPERTROPHY
     Dosage: UNK
     Dates: start: 19960206
  8. IDOCYKLIN [Concomitant]
     Indication: TONSILLAR HYPERTROPHY
  9. KAVEPENIN [Concomitant]
     Indication: INFLAMMATION
     Dosage: UNK
     Dates: start: 19961025
  10. DALACIN /OLD FORM/ [Concomitant]
     Indication: PROPHYLAXIS ANTIBIOTIC PRE-SURGICAL
     Dosage: UNK
     Dates: start: 19961120
  11. TIKACILLIN [Concomitant]
     Indication: INFLUENZA
     Dosage: UNK
     Dates: start: 19970121
  12. ORELOX [Concomitant]
     Indication: ACUTE SINUSITIS
     Dosage: UNK
     Dates: start: 19970211
  13. IMACILLIN [Concomitant]
     Indication: ACUTE SINUSITIS
     Dosage: UNK
     Dates: start: 19970527
  14. SELEXID [Concomitant]
     Indication: URINARY TRACT DISORDER
     Dosage: UNK
     Dates: start: 19970721
  15. SELEXID [Concomitant]
     Indication: URETHRAL DISORDER
  16. POTASSIUM CARBONATE [Concomitant]
     Indication: OSTEOPOROSIS
     Dosage: UNK
     Dates: start: 19970825
  17. VITAMIN D3 [Concomitant]
     Indication: OSTEOPOROSIS
     Dosage: UNK
     Dates: start: 19970825
  18. CIPROXIN [Concomitant]
     Indication: URINARY TRACT DISORDER
     Dosage: UNK
     Dates: start: 19971103
  19. CIPROXIN [Concomitant]
     Indication: URETHRAL DISORDER
  20. VAGIFEM [Concomitant]
     Indication: LUTEINIZING HORMONE DEFICIENCY
     Dosage: UNK
     Dates: start: 19980201
  21. VAGIFEM [Concomitant]
     Indication: FOLLICLE-STIMULATING HORMONE DEFICIENCY
  22. VAGIFEM [Concomitant]
     Indication: HYPOGONADISM FEMALE
  23. TRAMADOL [Concomitant]
     Indication: NEURALGIA
     Dosage: UNK
     Dates: start: 20000604
  24. TRAMADOL [Concomitant]
     Indication: NEURITIS
  25. INNOHEP [Concomitant]
     Indication: OTHER VENOUS EMBOLISM + THROMBOSIS
     Dosage: UNK
     Dates: start: 20010927
  26. GLUCOPHAGE ^ARON^ [Concomitant]
     Indication: DIABETES MELLITUS
     Dosage: UNK
     Dates: start: 20020606
  27. LEVOTHYROXINE [Concomitant]
     Indication: TSH DECREASED
     Dosage: UNK
     Dates: start: 19930701
  28. LEVOTHYROXINE [Concomitant]
     Indication: PRIMARY HYPOTHYROIDISM
  29. CORTISONE ACETATE [Concomitant]
     Indication: ACTH DECREASED
     Dosage: UNK
     Dates: start: 19930701
  30. PYRIDOXIN [Concomitant]
     Indication: NEURALGIA
     Dosage: UNK
     Dates: start: 19961219
  31. PYRIDOXIN [Concomitant]
     Indication: NEURITIS
  32. CORTAL [Concomitant]
     Indication: ACTH DECREASED
     Dosage: UNK
     Dates: start: 19930701
  33. CIPRAMIL [Concomitant]
     Indication: DEPRESSIVE DISORDER
     Dosage: UNK
     Dates: start: 20020321
  34. WARAN [Concomitant]
     Indication: OTHER VENOUS EMBOLISM + THROMBOSIS
     Dosage: UNK
     Dates: start: 20010927

REACTIONS (1)
  - Limb discomfort [Unknown]
